FAERS Safety Report 4946248-9 (Version None)
Quarter: 2006Q1

REPORT INFORMATION
  Report Type: 
  Country: None (occurrence: None)
  Receive Date: 20060317
  Receipt Date: 20060307
  Transmission Date: 20060701
  Serious: Yes (Death)
  Sender: FDA-Public Use
  Company Number: US-SANOFI-SYNTHELABO-A03200601245

PATIENT
  Sex: Female
  Weight: 47.62 kg

DRUGS (12)
  1. PLAVIX [Suspect]
     Indication: TRANSIENT ISCHAEMIC ATTACK
     Route: 048
     Dates: start: 20060101
  2. PRAVACHOL [Suspect]
     Indication: BLOOD CHOLESTEROL INCREASED
     Route: 048
     Dates: start: 20010101
  3. DIOVAN [Concomitant]
  4. FOSAMAX [Concomitant]
  5. PROTONIX [Concomitant]
  6. CLARINEX [Concomitant]
  7. PREMARIN [Concomitant]
  8. ISORDIL [Concomitant]
  9. KLONOPIN [Concomitant]
  10. DARVOCET [Concomitant]
  11. REGLAN [Concomitant]
  12. FLEXERIL [Concomitant]

REACTIONS (1)
  - CHRONIC OBSTRUCTIVE PULMONARY DISEASE [None]
